FAERS Safety Report 6276419-3 (Version None)
Quarter: 2009Q3

REPORT INFORMATION
  Report Type: 
  Country: None (occurrence: None)
  Receive Date: 20090717
  Receipt Date: 20090717
  Transmission Date: 20100115
  Serious: No
  Sender: FDA-Public Use
  Company Number: None

PATIENT
  Sex: Female
  Weight: 100 kg

DRUGS (1)
  1. LEVOTHYROXINE SODIUM [Suspect]
     Indication: THYROIDECTOMY
     Dosage: 1 PILL DAILY
     Dates: start: 20090501, end: 20090601

REACTIONS (2)
  - PRODUCT QUALITY ISSUE [None]
  - TABLET ISSUE [None]
